FAERS Safety Report 9255808 (Version 1)
Quarter: 2013Q2

REPORT INFORMATION
  Report Type: Spontaneous
  Country: US (occurrence: US)
  Receive Date: 20130425
  Receipt Date: 20130425
  Transmission Date: 20140414
  Serious: No
  Sender: FDA-Public Use
  Company Number: US-TEVA-396856USA

PATIENT
  Sex: Male
  Weight: 90.8 kg

DRUGS (5)
  1. NUVIGIL [Suspect]
     Indication: HYPERSOMNIA
     Dosage: QD
     Route: 048
     Dates: start: 2013, end: 2013
  2. NUVIGIL [Suspect]
     Indication: SLEEP APNOEA SYNDROME
  3. CRESTOR [Concomitant]
     Indication: BLOOD CHOLESTEROL
  4. MIRAPEX [Concomitant]
     Indication: RESTLESS LEGS SYNDROME
  5. VITAMINS [Concomitant]
     Indication: MEDICAL DIET

REACTIONS (6)
  - Pruritus [Not Recovered/Not Resolved]
  - Abdominal discomfort [Unknown]
  - Dizziness [Recovered/Resolved]
  - Feeling abnormal [Recovered/Resolved]
  - Insomnia [Recovered/Resolved]
  - Drug dose omission [Recovered/Resolved]
